FAERS Safety Report 5943464-4 (Version None)
Quarter: 2008Q4

REPORT INFORMATION
  Report Type: 
  Country: None (occurrence: None)
  Receive Date: 20081105
  Receipt Date: 20081105
  Transmission Date: 20090506
  Serious: Yes (Life-Threatening, Hospitalization, Disabling)
  Sender: FDA-Public Use
  Company Number: None

PATIENT
  Sex: Male
  Weight: 108.8633 kg

DRUGS (1)
  1. ZETIA [Suspect]
     Indication: BLOOD CHOLESTEROL
     Dosage: ONE PILL DAILY PO
     Route: 048
     Dates: start: 20060316, end: 20070528

REACTIONS (6)
  - ATRIAL FIBRILLATION [None]
  - BLOOD MAGNESIUM ABNORMAL [None]
  - CARDIAC DISORDER [None]
  - DIARRHOEA [None]
  - INTRACARDIAC THROMBUS [None]
  - NO THERAPEUTIC RESPONSE [None]
